FAERS Safety Report 7405922-5 (Version None)
Quarter: 2011Q2

REPORT INFORMATION
  Report Type: 
  Country: None (occurrence: None)
  Receive Date: 20110411
  Receipt Date: 20110330
  Transmission Date: 20111010
  Serious: Yes (Other)
  Sender: FDA-Public Use
  Company Number: US-JNJFOC-20110402890

PATIENT
  Sex: Male

DRUGS (2)
  1. EXTRA STRENGTH TYLENOL [Suspect]
     Route: 048
  2. EXTRA STRENGTH TYLENOL [Suspect]
     Indication: CANCER PAIN
     Dosage: 2000 MG TO 3000 MG A DAY
     Route: 048

REACTIONS (3)
  - OROPHARYNGEAL CANDIDIASIS [None]
  - FUNGAL INFECTION [None]
  - PRODUCT QUALITY ISSUE [None]
